FAERS Safety Report 8587231-4 (Version None)
Quarter: 2012Q3

REPORT INFORMATION
  Report Type: 
  Country: None (occurrence: None)
  Receive Date: 20120810
  Receipt Date: 20110817
  Transmission Date: 20120928
  Serious: No
  Sender: FDA-Public Use
  Company Number: US-ASTRAZENECA-2011SE49375

PATIENT
  Age: 56 Year
  Sex: Female
  Weight: 62.6 kg

DRUGS (3)
  1. CARDIZEM [Concomitant]
     Indication: HEART RATE INCREASED
  2. LISINOPRIL [Concomitant]
     Indication: BLOOD PRESSURE ABNORMAL
  3. ARIMIDEX [Suspect]
     Indication: BREAST CANCER
     Route: 048
     Dates: start: 20100401

REACTIONS (2)
  - ALOPECIA [None]
  - BLOOD PRESSURE ABNORMAL [None]
